FAERS Safety Report 21795232 (Version 1)
Quarter: 2022Q4

REPORT INFORMATION
  Report Type: Spontaneous
  Country: CN (occurrence: None)
  Receive Date: 20221229
  Receipt Date: 20221229
  Transmission Date: 20230113
  Serious: Yes (Other)
  Sender: FDA-Public Use
  Company Number: 2022A418242

PATIENT
  Age: 81 Year
  Sex: Female

DRUGS (3)
  1. SAXAGLIPTIN [Suspect]
     Active Substance: SAXAGLIPTIN
     Indication: Diabetes mellitus
     Dosage: 5 MG, ONCE EVERY ONE DAY,
     Route: 048
     Dates: start: 20181225, end: 20220814
  2. INSULIN ASPART [Suspect]
     Active Substance: INSULIN ASPART
     Indication: Diabetes mellitus
     Dosage: 14 IU, TWICE EVERY ONE DAY, ROUTE
     Route: 058
  3. ACARBOSE [Suspect]
     Active Substance: ACARBOSE
     Indication: Diabetes mellitus
     Dosage: 50 MG, THREE TIMES EVERY ONE DAY
     Route: 048

REACTIONS (1)
  - Hypoglycaemic coma [Recovering/Resolving]

NARRATIVE: CASE EVENT DATE: 20220814
